FAERS Safety Report 4567254-2 (Version None)
Quarter: 2005Q1

REPORT INFORMATION
  Report Type: 
  Country: None (occurrence: None)
  Receive Date: 20050201
  Receipt Date: 20050125
  Transmission Date: 20050727
  Serious: Yes (Other)
  Sender: FDA-Public Use
  Company Number: PHNU2005DE00681

PATIENT
  Sex: Male

DRUGS (3)
  1. PREDNISOLONE [Suspect]
  2. AGOPTON [Concomitant]
  3. SANDIMMUNE [Suspect]
     Indication: GLOMERULONEPHRITIS CHRONIC

REACTIONS (4)
  - BLOOD CREATINE PHOSPHOKINASE INCREASED [None]
  - LIVER FUNCTION TEST ABNORMAL [None]
  - MYALGIA [None]
  - RHABDOMYOLYSIS [None]
